FAERS Safety Report 9121561 (Version 4)
Quarter: 2013Q3

REPORT INFORMATION
  Report Type: Spontaneous
  Country: US (occurrence: US)
  Receive Date: 20130227
  Receipt Date: 20130826
  Transmission Date: 20140515
  Serious: Yes (Hospitalization)
  Sender: FDA-Public Use
  Company Number: US-AMGEN-USASP2013013303

PATIENT
  Age: 30 Year
  Sex: Female
  Weight: 46.71 kg

DRUGS (5)
  1. ENBREL [Suspect]
     Indication: RHEUMATOID ARTHRITIS
     Dosage: 50 MG, QWK
     Route: 065
     Dates: start: 20081115
  2. PRENATAL                           /00231801/ [Concomitant]
     Dosage: UNK
  3. FOLIC ACID [Concomitant]
     Dosage: UNK
  4. IRON [Concomitant]
     Dosage: UNK
  5. FLU [Concomitant]
     Dosage: UNK

REACTIONS (2)
  - Caesarean section [Recovered/Resolved]
  - Injection site pain [Not Recovered/Not Resolved]
